FAERS Safety Report 8052651-3 (Version None)
Quarter: 2012Q1

REPORT INFORMATION
  Report Type: 
  Country: None (occurrence: None)
  Receive Date: 20120118
  Receipt Date: 20120111
  Transmission Date: 20120608
  Serious: Yes (Other)
  Sender: FDA-Public Use
  Company Number: IT-JNJFOC-20120104290

PATIENT
  Age: 33 Year
  Sex: Female

DRUGS (4)
  1. CHLORPHENIRAMINE MALEATE [Concomitant]
     Indication: PREMEDICATION
     Route: 030
  2. ACETAMINOPHEN [Concomitant]
     Indication: PREMEDICATION
     Route: 042
  3. REMICADE [Suspect]
     Indication: JUVENILE ARTHRITIS
     Route: 042
     Dates: start: 20100610, end: 20100610
  4. HYDROCORTISONE SODIUM SUCCINATE [Concomitant]
     Indication: PREMEDICATION
     Route: 042

REACTIONS (6)
  - TACHYCARDIA [None]
  - DYSPNOEA [None]
  - MACROGLOSSIA [None]
  - CYANOSIS [None]
  - FACE OEDEMA [None]
  - INFUSION RELATED REACTION [None]
